FAERS Safety Report 8886595 (Version 2)
Quarter: 2013Q1

REPORT INFORMATION
  Report Type: Spontaneous
  Country: US (occurrence: US)
  Receive Date: 20121105
  Receipt Date: 20130107
  Transmission Date: 20140127
  Serious: Yes (Other)
  Sender: FDA-Public Use
  Company Number: US-ASTRAZENECA-2012SE81257

PATIENT
  Age: 30002 Day
  Sex: Female

DRUGS (7)
  1. BRILINTA [Suspect]
     Indication: ACUTE CORONARY SYNDROME
     Route: 048
     Dates: start: 20120924, end: 20121015
  2. TOPROL XL [Suspect]
     Route: 048
  3. PLAVIX [Suspect]
     Route: 048
  4. ASPIRIN [Concomitant]
  5. NORVASC [Concomitant]
  6. CYMBALTA [Concomitant]
  7. XANAX [Concomitant]

REACTIONS (2)
  - Dyspnoea [Recovered/Resolved]
  - Drug hypersensitivity [Unknown]
